FAERS Safety Report 19014752 (Version 1)
Quarter: 2021Q1

REPORT INFORMATION
  Report Type: Spontaneous
  Country: LT (occurrence: LT)
  Receive Date: 20210316
  Receipt Date: 20210316
  Transmission Date: 20210420
  Serious: Yes (Life-Threatening, Hospitalization, Other)
  Sender: FDA-Public Use
  Company Number: LT-PFIZER INC-2021250863

PATIENT
  Age: 41 Year
  Sex: Male

DRUGS (3)
  1. MIRTAZAPIN BASICS [Suspect]
     Active Substance: MIRTAZAPINE
     Dosage: 56 TABLETS INTAKE
     Route: 048
  2. BROMAZEPAM [Suspect]
     Active Substance: BROMAZEPAM
     Dosage: 30 TABLETS INTAKE
     Route: 048
  3. SERTRALINE HCL [Suspect]
     Active Substance: SERTRALINE HYDROCHLORIDE
     Dosage: 60 TABLETS INTAKE
     Route: 048

REACTIONS (3)
  - Somnolence [Recovered/Resolved]
  - Intentional overdose [Recovered/Resolved]
  - Suicide attempt [Recovered/Resolved]

NARRATIVE: CASE EVENT DATE: 20210217
